FAERS Safety Report 17219610 (Version 2)
Quarter: 2020Q1

REPORT INFORMATION
  Report Type: Spontaneous
  Country: AU (occurrence: AU)
  Receive Date: 20191231
  Receipt Date: 20200106
  Transmission Date: 20200409
  Serious: Yes (Hospitalization, Other)
  Sender: FDA-Public Use
  Company Number: AU-PFIZER INC-2019561897

PATIENT
  Age: 50 Year
  Sex: Female

DRUGS (5)
  1. PANTOPRAZOLE [Suspect]
     Active Substance: PANTOPRAZOLE
     Dosage: UNK
     Route: 065
  2. PREDNISOLONE. [Concomitant]
     Active Substance: PREDNISOLONE
     Indication: IMMUNOSUPPRESSION
     Dosage: UNK
     Route: 065
  3. BASILIXIMAB [Concomitant]
     Active Substance: BASILIXIMAB
     Indication: IMMUNOSUPPRESSION
     Dosage: UNK
     Route: 065
  4. TACROLIMUS. [Concomitant]
     Active Substance: TACROLIMUS
     Indication: IMMUNOSUPPRESSION
     Dosage: UNK
     Route: 065
  5. MYCOPHENOLATE MOFETIL. [Concomitant]
     Active Substance: MYCOPHENOLATE MOFETIL
     Indication: IMMUNOSUPPRESSION
     Dosage: UNK
     Route: 065

REACTIONS (12)
  - Vestibular neuronitis [Unknown]
  - Picornavirus infection [Unknown]
  - Tubulointerstitial nephritis [Unknown]
  - Renal impairment [Unknown]
  - Leukopenia [Unknown]
  - Lymphopenia [Unknown]
  - Influenza [Unknown]
  - Neutropenia [Unknown]
  - Encephalitis [Unknown]
  - Microsporidia infection [Unknown]
  - Transplant rejection [Unknown]
  - Transplant dysfunction [Unknown]

NARRATIVE: CASE EVENT DATE: 2015
